FAERS Safety Report 10409560 (Version 1)
Quarter: 2014Q3

REPORT INFORMATION
  Report Type: Spontaneous
  Country: US (occurrence: None)
  Receive Date: 20140825
  Receipt Date: 20140825
  Transmission Date: 20150326
  Serious: No
  Sender: FDA-Public Use
  Company Number: None

PATIENT
  Age: 29 Year
  Sex: Female
  Weight: 54.43 kg

DRUGS (1)
  1. EFFEXOR XR [Suspect]
     Active Substance: VENLAFAXINE HYDROCHLORIDE
     Indication: ANXIETY
     Dosage: 1 PILL ONCE DAILY TAKEN BY MOUTH
     Route: 048
     Dates: start: 20131101, end: 20140820

REACTIONS (14)
  - Vomiting [None]
  - Asthenia [None]
  - Pyrexia [None]
  - Aggression [None]
  - Hot flush [None]
  - Headache [None]
  - Nausea [None]
  - Paraesthesia [None]
  - Dizziness [None]
  - Agitation [None]
  - Loss of consciousness [None]
  - Feeling cold [None]
  - Vertigo [None]
  - Insomnia [None]

NARRATIVE: CASE EVENT DATE: 20140822
